FAERS Safety Report 8599170-3 (Version None)
Quarter: 2012Q3

REPORT INFORMATION
  Report Type: 
  Country: None (occurrence: None)
  Receive Date: 20120816
  Receipt Date: 20120809
  Transmission Date: 20120928
  Serious: Yes (Other)
  Sender: FDA-Public Use
  Company Number: GB-PFIZER INC-2012139812

PATIENT
  Age: 82 Year
  Sex: Female

DRUGS (1)
  1. LYRICA [Suspect]
     Dosage: 5 CAPSULES OF 25 MG, DAILY

REACTIONS (4)
  - COORDINATION ABNORMAL [None]
  - HAEMATOCHEZIA [None]
  - FALL [None]
  - BLOOD URINE PRESENT [None]
